FAERS Safety Report 6501858-2 (Version None)
Quarter: 2009Q4

REPORT INFORMATION
  Report Type: 
  Country: None (occurrence: None)
  Receive Date: 20091216
  Receipt Date: 20091211
  Transmission Date: 20100525
  Serious: Yes (Life-Threatening)
  Sender: FDA-Public Use
  Company Number: RU-CELGENEUS-251-21880-09121027

PATIENT
  Sex: Female
  Weight: 68 kg

DRUGS (7)
  1. REVLIMID [Suspect]
     Indication: MULTIPLE MYELOMA
     Route: 048
     Dates: start: 20091203
  2. SOTALOL HCL [Concomitant]
     Route: 048
     Dates: start: 20050101
  3. SIOFOR [Concomitant]
     Route: 048
     Dates: start: 20091101
  4. VEROSHPIRON [Concomitant]
     Route: 048
     Dates: start: 20091201
  5. VARFARIN [Concomitant]
     Route: 048
     Dates: start: 20091201
  6. ASPIRIN [Concomitant]
     Route: 048
     Dates: start: 20091201
  7. ALLOPURINOL [Concomitant]
     Route: 048
     Dates: start: 20091101

REACTIONS (1)
  - BRONCHIAL OBSTRUCTION [None]
